FAERS Safety Report 21495776 (Version 5)
Quarter: 2023Q2

REPORT INFORMATION
  Report Type: Report from Study
  Country: US (occurrence: US)
  Receive Date: 20221022
  Receipt Date: 20230426
  Transmission Date: 20230722
  Serious: Yes (Hospitalization, Other)
  Sender: FDA-Public Use
  Company Number: US-ABBVIE-4170189

PATIENT
  Sex: Male
  Weight: 40 kg

DRUGS (7)
  1. SKYRIZI [Suspect]
     Active Substance: RISANKIZUMAB-RZAA
     Indication: Psoriasis
     Dosage: FORM STRENGTH: 150 MILLIGRAM?WEEK 4
     Route: 058
  2. SKYRIZI [Suspect]
     Active Substance: RISANKIZUMAB-RZAA
     Dosage: FORM STRENGTH: 150 MILLIGRAM?WEEK 0,?FIRST ADMIN DATE?10/2022?LAST ADMIN DATE?10/2022
     Route: 058
  3. SKYRIZI [Suspect]
     Active Substance: RISANKIZUMAB-RZAA
     Dosage: 150 MILLIGRAM, FIRST ADMIN DATE 12/2022
     Route: 058
  4. CORTISONE [Concomitant]
     Active Substance: CORTISONE
     Indication: Product used for unknown indication
  5. CORTISONE [Concomitant]
     Active Substance: CORTISONE
     Indication: Product used for unknown indication
  6. Covid-19 vaccine [Concomitant]
     Indication: COVID-19 immunisation
     Dosage: 1ST DOSE
     Route: 030
     Dates: start: 20210101, end: 20210101
  7. Covid-19 vaccine [Concomitant]
     Indication: COVID-19 immunisation
     Dosage: 2ND DOSE
     Route: 030
     Dates: start: 20210201, end: 20210201

REACTIONS (17)
  - Pneumonia aspiration [Recovering/Resolving]
  - Loss of personal independence in daily activities [Unknown]
  - Loss of consciousness [Unknown]
  - Chest pain [Unknown]
  - COVID-19 [Unknown]
  - Unevaluable event [Unknown]
  - Skin disorder [Unknown]
  - Hypotension [Recovering/Resolving]
  - Gait inability [Unknown]
  - Hypotension [Unknown]
  - Pain [Unknown]
  - Dysphagia [Unknown]
  - Fall [Unknown]
  - Psoriasis [Recovering/Resolving]
  - Weight decreased [Recovering/Resolving]
  - Pruritus [Recovering/Resolving]
  - Swelling [Unknown]

NARRATIVE: CASE EVENT DATE: 20220101
